FAERS Safety Report 5514228-0 (Version None)
Quarter: 2007Q4

REPORT INFORMATION
  Report Type: 
  Country: None (occurrence: None)
  Receive Date: 20071113
  Receipt Date: 20071107
  Transmission Date: 20080405
  Serious: Yes (Death, Hospitalization)
  Sender: FDA-Public Use
  Company Number: AU-NOVOPROD-269149

PATIENT
  Age: 84 Year
  Sex: Male
  Weight: 48 kg

DRUGS (4)
  1. NOVOSEVEN [Suspect]
     Indication: HAEMORRHAGE
     Dosage: 1.2 MG, SINGLE
     Route: 042
     Dates: start: 20070615, end: 20070615
  2. NOVOSEVEN [Suspect]
     Dosage: 2.4 MG, SINGLE
     Route: 042
     Dates: start: 20070615, end: 20070615
  3. COLCHICINE [Concomitant]
     Indication: GOUT
  4. WARFARIN SODIUM [Concomitant]
     Dates: start: 20070506

REACTIONS (1)
  - CEREBRAL INFARCTION [None]
